FAERS Safety Report 19731448 (Version 1)
Quarter: 2021Q3

REPORT INFORMATION
  Report Type: Spontaneous
  Country: CN (occurrence: CN)
  Receive Date: 20210820
  Receipt Date: 20210820
  Transmission Date: 20211014
  Serious: Yes (Death, Hospitalization)
  Sender: FDA-Public Use
  Company Number: CN-PFIZER INC-2021691707

PATIENT
  Age: 1 Year
  Sex: Male

DRUGS (15)
  1. AMOXICILLIN + CLAV. POTASSIUM [Suspect]
     Active Substance: AMOXICILLIN\CLAVULANATE POTASSIUM
     Indication: KAWASAKI^S DISEASE
  2. DESLORATADINE. [Suspect]
     Active Substance: DESLORATADINE
     Indication: PNEUMONIA
     Dosage: UNK
  3. AMOXICILLIN + CLAV. POTASSIUM [Suspect]
     Active Substance: AMOXICILLIN\CLAVULANATE POTASSIUM
     Indication: PNEUMONIA
     Dosage: UNK
  4. DESLORATADINE. [Suspect]
     Active Substance: DESLORATADINE
     Indication: PROPHYLAXIS
  5. DEXAMETHASONE. [Suspect]
     Active Substance: DEXAMETHASONE
     Indication: PNEUMONIA
     Dosage: UNK
  6. DEXAMETHASONE. [Suspect]
     Active Substance: DEXAMETHASONE
     Indication: PROPHYLAXIS
  7. CALCIUM GLUCONATE. [Suspect]
     Active Substance: CALCIUM GLUCONATE
     Indication: KAWASAKI^S DISEASE
  8. DESLORATADINE. [Suspect]
     Active Substance: DESLORATADINE
     Indication: KAWASAKI^S DISEASE
  9. AZITHROMYCIN ANHYDROUS. [Suspect]
     Active Substance: AZITHROMYCIN ANHYDROUS
     Indication: PNEUMONIA
     Dosage: UNK
  10. CEFOPERAZONE SODIUM/SULBACTAM SODIUM [Suspect]
     Active Substance: CEFOPERAZONE SODIUM\SULBACTAM SODIUM
     Indication: KAWASAKI^S DISEASE
  11. AZITHROMYCIN ANHYDROUS. [Suspect]
     Active Substance: AZITHROMYCIN ANHYDROUS
     Indication: KAWASAKI^S DISEASE
  12. CEFOPERAZONE SODIUM/SULBACTAM SODIUM [Suspect]
     Active Substance: CEFOPERAZONE SODIUM\SULBACTAM SODIUM
     Indication: PNEUMONIA
     Dosage: UNK
  13. DEXAMETHASONE. [Suspect]
     Active Substance: DEXAMETHASONE
     Indication: KAWASAKI^S DISEASE
  14. CALCIUM GLUCONATE. [Suspect]
     Active Substance: CALCIUM GLUCONATE
     Indication: PNEUMONIA
     Dosage: UNK
  15. CALCIUM GLUCONATE. [Suspect]
     Active Substance: CALCIUM GLUCONATE
     Indication: PROPHYLAXIS

REACTIONS (1)
  - Drug ineffective [Fatal]
